FAERS Safety Report 21904835 (Version 1)
Quarter: 2023Q1

REPORT INFORMATION
  Report Type: Spontaneous
  Country: US (occurrence: None)
  Receive Date: 20230124
  Receipt Date: 20230124
  Transmission Date: 20230417
  Serious: Yes (Other)
  Sender: FDA-Public Use
  Company Number: None

PATIENT
  Age: 73 Year
  Sex: Male
  Weight: 86.18 kg

DRUGS (1)
  1. AMIODARONE [Suspect]
     Active Substance: AMIODARONE
     Dosage: FREQUENCY : DAILY;?
     Route: 048
     Dates: start: 20210413, end: 20220524

REACTIONS (3)
  - Optic neuropathy [None]
  - Therapy cessation [None]
  - Vision blurred [None]

NARRATIVE: CASE EVENT DATE: 20220520
